FAERS Safety Report 20460028 (Version 10)
Quarter: 2023Q4

REPORT INFORMATION
  Report Type: Other
  Country: CA (occurrence: None)
  Receive Date: 20220211
  Receipt Date: 20231222
  Transmission Date: 20240109
  Serious: Yes (Other)
  Sender: FDA-Public Use
  Company Number: CA-ROCHE-2664268

PATIENT
  Age: 40 Year
  Sex: Female
  Weight: 46.308 kg

DRUGS (11)
  1. OCREVUS [Suspect]
     Active Substance: OCRELIZUMAB
     Indication: Secondary progressive multiple sclerosis
     Dosage: 300 MG AT DAY 0 AND 14, THEN 600 MG EVERY 6 MONTH?NEXT DOSE RECEIVED ON 27/JUL/2020
     Route: 042
     Dates: start: 20200713, end: 202007
  2. OCREVUS [Suspect]
     Active Substance: OCRELIZUMAB
     Route: 042
     Dates: start: 20200713, end: 202007
  3. ATIVAN [Concomitant]
     Active Substance: LORAZEPAM
     Indication: Muscle spasticity
  4. ATIVAN [Concomitant]
     Active Substance: LORAZEPAM
     Indication: Anxiety
  5. BACLOFEN [Concomitant]
     Active Substance: BACLOFEN
     Indication: Muscle spasticity
     Route: 048
     Dates: start: 2006
  6. NABILONE [Concomitant]
     Active Substance: NABILONE
     Indication: Pain
     Dosage: TAKES 12 TO 20 MG PER DAY
     Route: 048
  7. CANNABIDIOL\HERBALS [Concomitant]
     Active Substance: CANNABIDIOL\HERBALS
     Indication: Product used for unknown indication
  8. DRONABINOL [Concomitant]
     Active Substance: DRONABINOL
  9. NABIXIMOLS [Concomitant]
     Active Substance: NABIXIMOLS
  10. CIPRALEX [Concomitant]
     Active Substance: ESCITALOPRAM OXALATE
  11. REXULTI [Concomitant]
     Active Substance: BREXPIPRAZOLE

REACTIONS (21)
  - Kidney infection [Recovered/Resolved]
  - Sinus disorder [Unknown]
  - Alopecia [Not Recovered/Not Resolved]
  - Stress [Not Recovered/Not Resolved]
  - Respiratory tract infection [Recovering/Resolving]
  - Tooth disorder [Not Recovered/Not Resolved]
  - Alopecia [Recovering/Resolving]
  - Eye infection [Not Recovered/Not Resolved]
  - Madarosis [Not Recovered/Not Resolved]
  - Trichiasis [Not Recovered/Not Resolved]
  - Madarosis [Not Recovered/Not Resolved]
  - Acne cystic [Not Recovered/Not Resolved]
  - Fatigue [Not Recovered/Not Resolved]
  - Nasopharyngitis [Unknown]
  - Muscle spasticity [Not Recovered/Not Resolved]
  - Mobility decreased [Not Recovered/Not Resolved]
  - Toothache [Not Recovered/Not Resolved]
  - Cystitis [Not Recovered/Not Resolved]
  - Brain fog [Not Recovered/Not Resolved]
  - Pain in extremity [Not Recovered/Not Resolved]
  - Multiple sclerosis [Unknown]

NARRATIVE: CASE EVENT DATE: 20200716
